FAERS Safety Report 16762336 (Version 2)
Quarter: 2019Q4

REPORT INFORMATION
  Report Type: Report from Study
  Country: US (occurrence: US)
  Receive Date: 20190831
  Receipt Date: 20191213
  Transmission Date: 20200122
  Serious: No
  Sender: FDA-Public Use
  Company Number: PHEH2019US036266

PATIENT
  Sex: Male

DRUGS (1)
  1. COSENTYX [Suspect]
     Active Substance: SECUKINUMAB
     Indication: PSORIASIS
     Dosage: 300 MG, QMO
     Route: 058
     Dates: start: 201904

REACTIONS (5)
  - Psoriasis [Unknown]
  - Skin fissures [Not Recovered/Not Resolved]
  - Dry skin [Recovering/Resolving]
  - Skin plaque [Unknown]
  - Drug ineffective [Unknown]
